FAERS Safety Report 9524003 (Version 2)
Quarter: 2013Q3

REPORT INFORMATION
  Report Type: Report from Study
  Country: JP (occurrence: JP)
  Receive Date: 20130916
  Receipt Date: 20130916
  Transmission Date: 20140515
  Serious: Yes (Other)
  Sender: FDA-Public Use
  Company Number: JP-MERCK-2009SP008367

PATIENT
  Age: 60 Year
  Sex: Female
  Weight: 44.4 kg

DRUGS (18)
  1. PEGINTERFERON ALFA-2B [Suspect]
     Indication: CHRONIC HEPATITIS C
     Dosage: 60 ?G, QW
     Route: 058
     Dates: start: 20090210, end: 20090407
  2. PEGINTERFERON ALFA-2B [Suspect]
     Dosage: 1.5UG/KG; RANGE:1250-1739UG/KG, ONCE A WEEK.
     Route: 058
  3. RIBAVIRIN [Suspect]
     Indication: CHRONIC HEPATITIS C
     Dosage: 600 MG, QD
     Route: 048
     Dates: start: 20090210, end: 20090223
  4. RIBAVIRIN [Suspect]
     Dosage: 400 MG, QD
     Route: 048
     Dates: start: 20090224, end: 20090316
  5. RIBAVIRIN [Suspect]
     Dosage: 200 MG, QD
     Route: 048
     Dates: start: 20090317, end: 20090408
  6. RIBAVIRIN [Suspect]
     Dosage: 400 MG, QD
     Route: 048
     Dates: start: 20090409, end: 20090414
  7. RIBAVIRIN [Suspect]
     Dosage: 200-600MG/DOSE; DAILY DOSE:600-1000MG, AFTER MEALS, BID
     Route: 048
  8. TELAPREVIR [Suspect]
     Indication: CHRONIC HEPATITIS C
     Dosage: 750 MG, TID, 8 HOURS AFTER MEAL.
     Route: 048
     Dates: start: 20090210, end: 20090414
  9. DICLOFENAC [Suspect]
     Indication: PYREXIA
     Dosage: 25 MG, PRN
     Route: 054
     Dates: start: 20090210, end: 20090421
  10. DERMOVATE [Concomitant]
     Indication: RASH
     Dosage: UNK UNK, PRN
     Route: 061
     Dates: start: 20090317, end: 20090423
  11. ALLELOCK [Concomitant]
     Indication: RASH
     Dosage: 5 MG, BID
     Route: 048
     Dates: start: 20090331
  12. TATHION [Concomitant]
     Indication: RASH
     Dosage: 100 MG, TID
     Route: 048
     Dates: start: 20090331, end: 20090514
  13. ATARAX P [Concomitant]
     Dosage: 25 MG, HS
     Route: 048
     Dates: start: 20090406
  14. NIPOLAZIN [Concomitant]
     Dosage: 3 MG, PRN
     Route: 048
     Dates: start: 20090406
  15. LIDOMEX [Concomitant]
     Dosage: UNK UNK, PRN
     Route: 061
     Dates: start: 20090413
  16. FLOMOX [Concomitant]
     Dosage: 100 MG, TID
     Route: 048
     Dates: start: 20090414
  17. MYSLEE [Concomitant]
     Indication: INSOMNIA
     Dosage: 5 MG, PRN
     Route: 048
     Dates: start: 20090211
  18. ORADOL [Concomitant]
     Indication: OROPHARYNGEAL DISCOMFORT
     Dosage: 0.5 MG, PRN
     Dates: start: 20090220, end: 20090330

REACTIONS (2)
  - Drug reaction with eosinophilia and systemic symptoms [Recovered/Resolved]
  - Drug reaction with eosinophilia and systemic symptoms [Recovered/Resolved]
